FAERS Safety Report 5217254-4 (Version None)
Quarter: 2007Q1

REPORT INFORMATION
  Report Type: 
  Country: None (occurrence: None)
  Receive Date: 20070122
  Receipt Date: 20070122
  Transmission Date: 20070707
  Serious: Yes (Hospitalization)
  Sender: FDA-Public Use
  Company Number: None

PATIENT
  Age: 82 Year
  Sex: Male

DRUGS (3)
  1. AMIODARONE HCL [Suspect]
     Dosage: 200 MG PO QD
     Route: 048
  2. METOPROLOL SUCCINATE [Suspect]
     Dosage: 25 MG PO BID
     Route: 048
  3. TAMSULOSIN HCL [Suspect]
     Dosage: 0.4 MG PO QD
     Route: 048

REACTIONS (2)
  - HYPOTENSION [None]
  - SYNCOPE [None]
